FAERS Safety Report 8127754-5 (Version None)
Quarter: 2011Q4

REPORT INFORMATION
  Report Type: 
  Country: None (occurrence: None)
  Receive Date: 20111230
  Receipt Date: 20110906
  Transmission Date: 20120403
  Serious: Yes (Other)
  Sender: FDA-Public Use
  Company Number: 254786USA

PATIENT
  Sex: Female

DRUGS (1)
  1. AMIODARONE HYDROCHLORIDE [Suspect]
     Indication: TACHYCARDIA
     Dosage: (200 MG),ORAL
     Route: 048
     Dates: start: 20070101

REACTIONS (9)
  - COUGH [None]
  - OXYGEN SATURATION DECREASED [None]
  - DYSPNOEA [None]
  - ABASIA [None]
  - TOXICITY TO VARIOUS AGENTS [None]
  - GAIT DISTURBANCE [None]
  - PULMONARY FIBROSIS [None]
  - PRODUCTIVE COUGH [None]
  - PLEURAL EFFUSION [None]
